FAERS Safety Report 6776761-3 (Version None)
Quarter: 2010Q2

REPORT INFORMATION
  Report Type: 
  Country: None (occurrence: None)
  Receive Date: 20100617
  Receipt Date: 20100617
  Transmission Date: 20101027
  Serious: Yes (Hospitalization)
  Sender: FDA-Public Use
  Company Number: None

PATIENT
  Age: 34 Year
  Sex: Female

DRUGS (8)
  1. VANCOMYCIN [Suspect]
     Indication: INFECTION
     Dosage: VANCOMYCIN Q12H IV
     Route: 042
     Dates: start: 20100127, end: 20100202
  2. PIPERACILLIN AND TAZOBACTAM [Concomitant]
  3. SIMVASTATIN [Concomitant]
  4. METRONIDAZOLE [Concomitant]
  5. FERROUS SULFATE TAB [Concomitant]
  6. ESOMEPRAZOLE [Concomitant]
  7. TYLENOL W/ CODEINE NO. 3 [Concomitant]
  8. DIVALPROEX SODIUM [Concomitant]

REACTIONS (1)
  - NEPHROPATHY TOXIC [None]
